FAERS Safety Report 4471698-7 (Version None)
Quarter: 2004Q4

REPORT INFORMATION
  Report Type: 
  Country: None (occurrence: None)
  Receive Date: 20041012
  Receipt Date: 20041007
  Transmission Date: 20050328
  Serious: Yes (Death)
  Sender: FDA-Public Use
  Company Number: US-MERCK-0410USA01162

PATIENT
  Age: 60 Year
  Sex: Male

DRUGS (11)
  1. ASPIRIN [Concomitant]
     Route: 065
  2. PLAVIX [Concomitant]
     Route: 065
  3. DIPYRIDAMOLE [Concomitant]
     Route: 065
  4. INDOCIN [Concomitant]
     Route: 065
  5. ISOSORBIDE [Concomitant]
     Route: 065
  6. MEVACOR [Concomitant]
     Route: 048
  7. NAPROXEN [Concomitant]
     Route: 065
  8. NITROGLYCERIN [Concomitant]
     Route: 065
  9. QUINIDINE [Concomitant]
     Route: 065
  10. VIOXX [Suspect]
     Indication: SPONDYLITIS
     Route: 048
     Dates: start: 20000101, end: 20040801
  11. TRIAMTERENE [Concomitant]
     Route: 065

REACTIONS (1)
  - MYOCARDIAL INFARCTION [None]
